FAERS Safety Report 7039862-0 (Version None)
Quarter: 2010Q3

REPORT INFORMATION
  Report Type: 
  Country: None (occurrence: None)
  Receive Date: 20100929
  Receipt Date: 20100714
  Transmission Date: 20110219
  Serious: Yes (Other)
  Sender: FDA-Public Use
  Company Number: US-WYE-H16197010

PATIENT
  Age: 49 Year
  Sex: Female
  Weight: 131.66 kg

DRUGS (5)
  1. PRISTIQ [Suspect]
     Indication: ANXIETY
     Dosage: 50 MG 1X PER 1 DAY, ORAL
     Route: 048
     Dates: start: 20100601, end: 20100714
  2. AVAPRO [Concomitant]
  3. CLONIDINE [Concomitant]
  4. LEXAPRO [Concomitant]
  5. XANAX [Concomitant]

REACTIONS (12)
  - ABDOMINAL DISTENSION [None]
  - ABDOMINAL PAIN [None]
  - ANGER [None]
  - CONDITION AGGRAVATED [None]
  - CONSTIPATION [None]
  - DIZZINESS [None]
  - DRUG INEFFECTIVE [None]
  - EXPIRED DRUG ADMINISTERED [None]
  - GAIT DISTURBANCE [None]
  - HYPERTENSION [None]
  - MOOD ALTERED [None]
  - UNEVALUABLE EVENT [None]
